FAERS Safety Report 17666434 (Version 3)
Quarter: 2020Q2

REPORT INFORMATION
  Report Type: Report from Study
  Country: GB (occurrence: GB)
  Receive Date: 20200414
  Receipt Date: 20200430
  Transmission Date: 20200713
  Serious: Yes (Death, Life-Threatening, Hospitalization, Other)
  Sender: FDA-Public Use
  Company Number: GB-PFIZER INC-2020151010

PATIENT
  Age: 5 Year
  Sex: Male
  Weight: 19.7 kg

DRUGS (6)
  1. COTRIMOXAZOLE [Concomitant]
     Active Substance: SULFAMETHOXAZOLE\TRIMETHOPRIM
     Indication: PROPHYLAXIS
     Dosage: 360MG LIQUID TWICE DAILY ON SATURDAY AND SUNDAY ONLY
     Route: 048
     Dates: start: 20191116
  2. SANDO K [POTASSIUM CHLORIDE] [Concomitant]
     Indication: BLOOD POTASSIUM DECREASED
     Dosage: 1 TABLET, 3X/DAY
     Route: 048
     Dates: start: 20200208
  3. ONDANSETRON [Concomitant]
     Active Substance: ONDANSETRON
     Indication: PROPHYLAXIS
     Dosage: 2 MG, 2X/DAY LIQUID
     Route: 048
     Dates: start: 20191026
  4. CRIZOTINIB [Suspect]
     Active Substance: CRIZOTINIB
     Dosage: 280 MG/M2, 2X/DAY
     Route: 048
     Dates: start: 20200204
  5. CRIZOTINIB [Suspect]
     Active Substance: CRIZOTINIB
     Dosage: 165 MG, UNK
     Route: 048
     Dates: start: 20200401, end: 20200407
  6. MAGNESIUM GLYCEROPHOSPHATE [Concomitant]
     Active Substance: MAGNESIUM GLYCEROPHOSPHATE
     Indication: BLOOD MAGNESIUM DECREASED
     Dosage: 4 MMOL, 3X/DAY, LIQUID FORMULATION
     Route: 048
     Dates: start: 20200408

REACTIONS (1)
  - Optic neuritis [Not Recovered/Not Resolved]

NARRATIVE: CASE EVENT DATE: 20200407
